FAERS Safety Report 7318784-1 (Version None)
Quarter: 2011Q1

REPORT INFORMATION
  Report Type: 
  Country: None (occurrence: None)
  Receive Date: 20110228
  Receipt Date: 20100511
  Transmission Date: 20110831
  Serious: No
  Sender: FDA-Public Use
  Company Number: A0860887A

PATIENT
  Sex: Female

DRUGS (2)
  1. IMITREX [Suspect]
     Dosage: 100MG UNKNOWN
     Route: 048
  2. SUMATRIPTAN SUCCINATE [Suspect]
     Dosage: 100MG UNKNOWN
     Route: 048

REACTIONS (1)
  - SOMNOLENCE [None]
